FAERS Safety Report 6844309-0 (Version None)
Quarter: 2010Q3

REPORT INFORMATION
  Report Type: 
  Country: None (occurrence: None)
  Receive Date: 20100715
  Receipt Date: 20100707
  Transmission Date: 20110219
  Serious: Yes (Other)
  Sender: FDA-Public Use
  Company Number: BR-ROCHE-714100

PATIENT
  Sex: Female
  Weight: 57 kg

DRUGS (1)
  1. BONIVA [Suspect]
     Indication: OSTEOPOROSIS
     Route: 065
     Dates: start: 20050301

REACTIONS (4)
  - BONE DISORDER [None]
  - GASTRITIS [None]
  - OESOPHAGITIS [None]
  - PARATHYROID TUMOUR BENIGN [None]
